FAERS Safety Report 4853598-3 (Version None)
Quarter: 2005Q4

REPORT INFORMATION
  Report Type: 
  Country: None (occurrence: None)
  Receive Date: 20051212
  Receipt Date: 20051128
  Transmission Date: 20060501
  Serious: No
  Sender: FDA-Public Use
  Company Number: 2005152694

PATIENT
  Age: 55 Year
  Sex: Male

DRUGS (4)
  1. ATORVASTATIN CALCIUM [Suspect]
     Indication: DYSLIPIDAEMIA
     Dosage: 10 MG (10 MG, 1 IN 1 D); ORAL
     Route: 048
     Dates: start: 20050412
  2. ATORVASTATIN CALCIUM [Suspect]
     Indication: WEIGHT DECREASED
     Dosage: 10 MG (10 MG, 1 IN 1 D); ORAL
     Route: 048
     Dates: start: 20050412
  3. ATENOLOL [Concomitant]
  4. MODURETIC 5-50 [Concomitant]

REACTIONS (1)
  - CEREBROVASCULAR ACCIDENT [None]
